FAERS Safety Report 22373572 (Version 1)
Quarter: 2023Q2

REPORT INFORMATION
  Report Type: Spontaneous
  Country: HU (occurrence: HU)
  Receive Date: 20230526
  Receipt Date: 20230526
  Transmission Date: 20230722
  Serious: Yes (Other)
  Sender: FDA-Public Use
  Company Number: HU-002147023-NVSC2021HU058596

PATIENT
  Age: 69 Year
  Sex: Male

DRUGS (11)
  1. DICLOFENAC [Suspect]
     Active Substance: DICLOFENAC
     Indication: Musculoskeletal discomfort
     Dosage: UNK
     Route: 065
  2. SACUBITRIL\VALSARTAN [Suspect]
     Active Substance: SACUBITRIL\VALSARTAN
     Indication: Product used for unknown indication
     Dosage: UNK (TEMPORARY DOSE REDUCTION)
     Route: 065
  3. SACUBITRIL\VALSARTAN [Suspect]
     Active Substance: SACUBITRIL\VALSARTAN
     Dosage: 50 MG (24/26 MG) (2X)
     Route: 065
  4. SACUBITRIL\VALSARTAN [Suspect]
     Active Substance: SACUBITRIL\VALSARTAN
     Dosage: 100 MG (49/51 MG) (2X)
     Route: 065
  5. FUROSEMIDE [Concomitant]
     Active Substance: FUROSEMIDE
     Indication: Product used for unknown indication
     Dosage: UNK
  6. FUROSEMIDE [Concomitant]
     Active Substance: FUROSEMIDE
     Indication: Product used for unknown indication
     Dosage: 1 DF
  7. FUROSEMIDE [Concomitant]
     Active Substance: FUROSEMIDE
     Dosage: UNK (DOUBLING THE DOSE)
  8. INSPRA [Concomitant]
     Active Substance: EPLERENONE
     Indication: Product used for unknown indication
     Dosage: UNK (TEMPORARY DOSE REDUCTION)
  9. INSPRA [Concomitant]
     Active Substance: EPLERENONE
     Dosage: 12.5 MG
  10. EMPAGLIFLOZIN [Concomitant]
     Active Substance: EMPAGLIFLOZIN
     Indication: Product used for unknown indication
     Dosage: 25 MG
  11. EMPAGLIFLOZIN [Concomitant]
     Active Substance: EMPAGLIFLOZIN
     Dosage: 10 MG

REACTIONS (9)
  - Cardiac failure chronic [Unknown]
  - Fluid retention [Unknown]
  - Blood potassium increased [Unknown]
  - Iron deficiency [Unknown]
  - Dyspnoea paroxysmal nocturnal [Unknown]
  - Musculoskeletal disorder [Unknown]
  - N-terminal prohormone brain natriuretic peptide decreased [Unknown]
  - Weight increased [Unknown]
  - Hypotension [Unknown]

NARRATIVE: CASE EVENT DATE: 20181101
